FAERS Safety Report 4848639-3 (Version None)
Quarter: 2005Q4

REPORT INFORMATION
  Report Type: 
  Country: None (occurrence: None)
  Receive Date: 20051206
  Receipt Date: 20051123
  Transmission Date: 20060501
  Serious: Yes (Hospitalization, Other)
  Sender: FDA-Public Use
  Company Number: 2005159586

PATIENT
  Age: 19 Year
  Sex: Male

DRUGS (3)
  1. PIROXICAM [Suspect]
     Indication: JOINT SPRAIN
     Dosage: ORAL
     Route: 048
  2. COUMARIN (COUMARIN) [Suspect]
     Indication: JOINT SPRAIN
     Dosage: ORAL
     Route: 048
  3. SALICYLATES (SALICYLATES) [Suspect]
     Indication: JOINT SPRAIN
     Dosage: ORAL
     Route: 048

REACTIONS (2)
  - ACUTE GENERALISED EXANTHEMATOUS PUSTULOSIS [None]
  - DERMATITIS CONTACT [None]
